FAERS Safety Report 5622035-3 (Version None)
Quarter: 2008Q1

REPORT INFORMATION
  Report Type: 
  Country: None (occurrence: None)
  Receive Date: 20080211
  Receipt Date: 20080205
  Transmission Date: 20080703
  Serious: Yes (Hospitalization)
  Sender: FDA-Public Use
  Company Number: PHNU2006DE04079

PATIENT
  Age: 42 Year
  Sex: Female
  Weight: 120 kg

DRUGS (3)
  1. VOLTAREN [Suspect]
     Indication: ARTHRITIS
     Dosage: 1 DF, QD
     Route: 048
     Dates: start: 20061101, end: 20061103
  2. DICLOFENAC [Suspect]
     Dosage: UNK, ONCE/SINGLE
     Route: 030
     Dates: start: 20061031
  3. DEXAMETHASONE TAB [Concomitant]
     Route: 030

REACTIONS (4)
  - HAEMATOMA [None]
  - HAEMOGLOBIN DECREASED [None]
  - SKIN HAEMORRHAGE [None]
  - TRANSFUSION [None]
